FAERS Safety Report 25612009 (Version 1)
Quarter: 2025Q3

REPORT INFORMATION
  Report Type: Spontaneous
  Country: EU (occurrence: EU)
  Receive Date: 20250728
  Receipt Date: 20250728
  Transmission Date: 20251020
  Serious: Yes (Hospitalization)
  Sender: MYLAN
  Company Number: None

PATIENT
  Age: 44 Year
  Sex: Female
  Weight: 60 kg

DRUGS (16)
  1. CETIRIZINE [Suspect]
     Active Substance: CETIRIZINE HYDROCHLORIDE
     Indication: Product used for unknown indication
     Dates: start: 20250529, end: 20250529
  2. CETIRIZINE [Suspect]
     Active Substance: CETIRIZINE HYDROCHLORIDE
     Route: 048
     Dates: start: 20250529, end: 20250529
  3. CETIRIZINE [Suspect]
     Active Substance: CETIRIZINE HYDROCHLORIDE
     Route: 048
     Dates: start: 20250529, end: 20250529
  4. CETIRIZINE [Suspect]
     Active Substance: CETIRIZINE HYDROCHLORIDE
     Dates: start: 20250529, end: 20250529
  5. CLOMIPRAMINE [Suspect]
     Active Substance: CLOMIPRAMINE
     Indication: Product used for unknown indication
     Dosage: 30 DOSAGE FORM, QD
     Dates: start: 20250529, end: 20250529
  6. CLOMIPRAMINE [Suspect]
     Active Substance: CLOMIPRAMINE
     Dosage: 30 DOSAGE FORM, QD
     Route: 048
     Dates: start: 20250529, end: 20250529
  7. CLOMIPRAMINE [Suspect]
     Active Substance: CLOMIPRAMINE
     Dosage: 30 DOSAGE FORM, QD
     Route: 048
     Dates: start: 20250529, end: 20250529
  8. CLOMIPRAMINE [Suspect]
     Active Substance: CLOMIPRAMINE
     Dosage: 30 DOSAGE FORM, QD
     Dates: start: 20250529, end: 20250529
  9. HYDROXYZINE [Suspect]
     Active Substance: HYDROXYZINE HYDROCHLORIDE
     Indication: Product used for unknown indication
     Dates: start: 20250529, end: 20250529
  10. HYDROXYZINE [Suspect]
     Active Substance: HYDROXYZINE HYDROCHLORIDE
     Route: 048
     Dates: start: 20250529, end: 20250529
  11. HYDROXYZINE [Suspect]
     Active Substance: HYDROXYZINE HYDROCHLORIDE
     Route: 048
     Dates: start: 20250529, end: 20250529
  12. HYDROXYZINE [Suspect]
     Active Substance: HYDROXYZINE HYDROCHLORIDE
     Dates: start: 20250529, end: 20250529
  13. OXAZEPAM [Suspect]
     Active Substance: OXAZEPAM
     Indication: Product used for unknown indication
     Dosage: 40 DOSAGE FORM, QD
     Dates: start: 20250529, end: 20250529
  14. OXAZEPAM [Suspect]
     Active Substance: OXAZEPAM
     Dosage: 40 DOSAGE FORM, QD
     Route: 048
     Dates: start: 20250529, end: 20250529
  15. OXAZEPAM [Suspect]
     Active Substance: OXAZEPAM
     Dosage: 40 DOSAGE FORM, QD
     Route: 048
     Dates: start: 20250529, end: 20250529
  16. OXAZEPAM [Suspect]
     Active Substance: OXAZEPAM
     Dosage: 40 DOSAGE FORM, QD
     Dates: start: 20250529, end: 20250529

REACTIONS (5)
  - Somnolence [Recovered/Resolved]
  - Bradypnoea [Recovered/Resolved]
  - Electrocardiogram QT prolonged [Recovered/Resolved]
  - Poisoning deliberate [Recovered/Resolved]
  - Intentional overdose [Unknown]

NARRATIVE: CASE EVENT DATE: 20250529
